FAERS Safety Report 8829562 (Version 1)
Quarter: 2012Q4

REPORT INFORMATION
  Report Type: 
  Country: US (occurrence: US)
  Receive Date: 20121008
  Receipt Date: 20121008
  Transmission Date: 20130627
  Serious: No
  Sender: FDA-Public Use
  Company Number: US-TEVA-328089USA

PATIENT
  Age: 56 Year
  Sex: Male

DRUGS (6)
  1. QVAR [Suspect]
     Indication: ASTHMA
     Dosage: 80 Microgram Daily;
     Dates: start: 201203, end: 201203
  2. MOXIFLOXACIN HYDROCHLORIDE [Suspect]
  3. MONTELUKAST [Suspect]
  4. ALPRAZOLAM [Concomitant]
  5. TEMAZEPAM [Concomitant]
  6. DEXILANT [Concomitant]

REACTIONS (1)
  - Urinary tract infection [Not Recovered/Not Resolved]
